FAERS Safety Report 19070044 (Version 1)
Quarter: 2021Q1

REPORT INFORMATION
  Report Type: Spontaneous
  Country: SK (occurrence: SK)
  Receive Date: 20210329
  Receipt Date: 20210329
  Transmission Date: 20210420
  Serious: Yes (Other)
  Sender: FDA-Public Use
  Company Number: SK-MYLANLABS-2021M1017778

PATIENT
  Age: 68 Year
  Sex: Male
  Weight: 69 kg

DRUGS (4)
  1. DITHIADEN [Suspect]
     Active Substance: BISULEPIN
     Indication: RECTAL CANCER
     Dosage: 2 MILLIGRAM, BID
     Dates: start: 20210118, end: 20210208
  2. DEXAMED /00016001/ [Suspect]
     Active Substance: DEXAMETHASONE
     Indication: RECTAL CANCER
     Dosage: 8 MILLIGRAM, QD
     Dates: start: 20210118, end: 20210208
  3. OXALIPLATIN MYLAN [Suspect]
     Active Substance: OXALIPLATIN
     Indication: RECTAL CANCER
     Dosage: 125 MILLIGRAM, D 1 DAY, 8TH DAY, Q3W
     Dates: start: 20210118, end: 20210208
  4. DEGAN [Suspect]
     Active Substance: METOCLOPRAMIDE HYDROCHLORIDE
     Indication: RECTAL CANCER
     Dosage: 10 MILLIGRAM, BID
     Dates: start: 20210118, end: 20210208

REACTIONS (4)
  - Stridor [Unknown]
  - Dyspnoea [Unknown]
  - Aphonia [Unknown]
  - Dysphonia [Unknown]

NARRATIVE: CASE EVENT DATE: 20210208
